FAERS Safety Report 6819243-2 (Version None)
Quarter: 2010Q2

REPORT INFORMATION
  Report Type: 
  Country: None (occurrence: None)
  Receive Date: 20100630
  Receipt Date: 20100622
  Transmission Date: 20101027
  Serious: Yes (Death, Hospitalization)
  Sender: FDA-Public Use
  Company Number: 236059K06USA

PATIENT
  Age: 59 Year
  Sex: Female
  Weight: 66 kg

DRUGS (1)
  1. REBIF [Suspect]
     Indication: MULTIPLE SCLEROSIS
     Dosage: 44 MCG, 3 IN 1 WK, SUBCUTANEOUS
     Route: 058
     Dates: start: 20030321

REACTIONS (2)
  - COLON CANCER [None]
  - DRUG HYPERSENSITIVITY [None]
